FAERS Safety Report 6488479-5 (Version None)
Quarter: 2009Q4

REPORT INFORMATION
  Report Type: 
  Country: None (occurrence: None)
  Receive Date: 20091210
  Receipt Date: 20090904
  Transmission Date: 20100525
  Serious: No
  Sender: FDA-Public Use
  Company Number: US-AMGEN-KDL363273

PATIENT
  Sex: Male

DRUGS (1)
  1. ENBREL [Suspect]
     Indication: ANKYLOSING SPONDYLITIS
     Route: 058

REACTIONS (7)
  - ANKYLOSING SPONDYLITIS [None]
  - ARTHRALGIA [None]
  - DIZZINESS [None]
  - INFLUENZA [None]
  - PAIN [None]
  - PYREXIA [None]
  - WISDOM TEETH REMOVAL [None]
